FAERS Safety Report 8484183 (Version 4)
Quarter: 2013Q4

REPORT INFORMATION
  Report Type: Report from Study
  Country: CA (occurrence: CA)
  Receive Date: 20120330
  Receipt Date: 20131212
  Transmission Date: 20140711
  Serious: Yes (Hospitalization, Other)
  Sender: FDA-Public Use
  Company Number: PHHY2012CA025111

PATIENT
  Age: 41 Year
  Sex: Female

DRUGS (1)
  1. SANDOSTATIN LAR [Suspect]
     Indication: PANCREATIC NEUROENDOCRINE TUMOUR
     Dosage: 30 MG, EVERY 4 WEEKS
     Route: 030
     Dates: start: 20110512

REACTIONS (12)
  - Hypoaesthesia [Unknown]
  - Arterial occlusive disease [Unknown]
  - Poor peripheral circulation [Unknown]
  - Skin discolouration [Unknown]
  - Pain in extremity [Unknown]
  - Cardiac enzymes increased [Unknown]
  - Sepsis [Unknown]
  - Myocardial infarction [Unknown]
  - Hypotension [Unknown]
  - Vomiting [Unknown]
  - Malignant neoplasm progression [Unknown]
  - Hormone level abnormal [Unknown]
